FAERS Safety Report 9819587 (Version 1)
Quarter: 2014Q1

REPORT INFORMATION
  Report Type: Spontaneous
  Country: US (occurrence: None)
  Receive Date: 20140113
  Receipt Date: 20140113
  Transmission Date: 20141002
  Serious: Yes (Hospitalization)
  Sender: FDA-Public Use
  Company Number: IND1112385

PATIENT
  Age: 27 Year
  Sex: Male

DRUGS (4)
  1. DOVITINIB [Suspect]
     Indication: ADENOID CYSTIC CARCINOMA
     Dates: start: 20131209
  2. ATIVAN [Concomitant]
  3. COMPAXINE [Concomitant]
  4. ZOFRAN [Concomitant]

REACTIONS (2)
  - Pleural effusion [None]
  - Chest pain [None]
